FAERS Safety Report 6497043-3 (Version None)
Quarter: 2009Q4

REPORT INFORMATION
  Report Type: 
  Country: None (occurrence: None)
  Receive Date: 20091215
  Receipt Date: 20090204
  Transmission Date: 20100525
  Serious: No
  Sender: FDA-Public Use
  Company Number: A0766878A

PATIENT
  Age: 68 Year
  Sex: Male

DRUGS (10)
  1. AVODART [Suspect]
     Indication: BENIGN PROSTATIC HYPERPLASIA
     Dosage: .5 PER DAY
     Route: 048
  2. SYNTHROID [Concomitant]
  3. COREG [Concomitant]
  4. INSPRA [Concomitant]
  5. VYTORIN [Concomitant]
  6. JANUMET [Concomitant]
  7. PLAVIX [Concomitant]
  8. NIASPAN [Concomitant]
  9. CLONAZEPAM [Concomitant]
  10. EFFEXOR XR [Concomitant]

REACTIONS (1)
  - DRUG INEFFECTIVE [None]
